FAERS Safety Report 8511390-2 (Version None)
Quarter: 2012Q3

REPORT INFORMATION
  Report Type: 
  Country: None (occurrence: None)
  Receive Date: 20120716
  Receipt Date: 20120705
  Transmission Date: 20120928
  Serious: Yes (Hospitalization)
  Sender: FDA-Public Use
  Company Number: JP-NOVOPROD-355464

PATIENT
  Age: 80 Year
  Sex: Female
  Weight: 35 kg

DRUGS (13)
  1. DIART [Concomitant]
     Dosage: 60 MG, QD
     Route: 048
     Dates: start: 20110406
  2. CARVEDILOL [Concomitant]
     Dosage: 5 MG, QD
     Route: 048
  3. VICTOZA [Suspect]
     Dosage: 0.6 MG, QD
     Route: 058
  4. MICARDIS [Concomitant]
     Dosage: 40 MG, QD
     Route: 048
  5. ZOLPIDEM [Concomitant]
     Dosage: 10 MG, QD
     Route: 048
  6. KETOPROFEN [Concomitant]
     Dosage: /TO
  7. WARFARIN SODIUM [Concomitant]
     Dosage: 2 MG, QD
     Route: 048
  8. VICTOZA [Suspect]
     Indication: TYPE 2 DIABETES MELLITUS
     Dosage: 0.3 MG, QD
     Route: 058
     Dates: start: 20120311
  9. VASOLAN                            /00014302/ [Concomitant]
     Dosage: 80 MG, QD
     Route: 048
  10. ALOSENN                            /00476901/ [Concomitant]
     Dosage: 1 G, QD
     Route: 048
  11. ALLOPURINOL [Concomitant]
     Dosage: 100 MG, QD
     Route: 048
  12. SUNRYTHM [Concomitant]
     Dosage: 3 CAPS, QD
     Route: 048
  13. ALDACTONE [Concomitant]
     Dosage: 25 MG, QD
     Route: 048

REACTIONS (1)
  - INTESTINAL OBSTRUCTION [None]
